FAERS Safety Report 5503442-6 (Version None)
Quarter: 2007Q4

REPORT INFORMATION
  Report Type: 
  Country: None (occurrence: None)
  Receive Date: 20071031
  Receipt Date: 20071019
  Transmission Date: 20080405
  Serious: Yes (Hospitalization)
  Sender: FDA-Public Use
  Company Number: IT-ELI_LILLY_AND_COMPANY-IT200710007201

PATIENT
  Age: 28 Year
  Sex: Female

DRUGS (4)
  1. FLUOXETINE HYDROCHLORIDE [Suspect]
     Indication: BULIMIA NERVOSA
     Dosage: 60 MG, DAILY (1/D)
  2. FLUOXETINE HYDROCHLORIDE [Interacting]
     Dosage: 20 MG, DAILY (1/D)
  3. ELETRIPTAN [Concomitant]
     Indication: MIGRAINE
     Dosage: 40 MG, AS NEEDED
  4. ST. JOHN'S WORT [Concomitant]

REACTIONS (3)
  - DRUG INTERACTION [None]
  - RHABDOMYOLYSIS [None]
  - SEROTONIN SYNDROME [None]
